FAERS Safety Report 8816577 (Version 1)
Quarter: 2012Q4

REPORT INFORMATION
  Report Type: Spontaneous
  Country: US (occurrence: None)
  Receive Date: 20121001
  Receipt Date: 20121001
  Transmission Date: 20130627
  Serious: Yes (Hospitalization)
  Sender: FDA-Public Use
  Company Number: None

PATIENT
  Age: 59 Year
  Sex: Female
  Weight: 66.4 kg

DRUGS (2)
  1. LISINOPRIL [Suspect]
     Indication: HYPERTENSION
     Dosage: 40 MG EVERY DAY PO
     Route: 048
     Dates: start: 19981201, end: 20120907
  2. LISINOPRIL [Suspect]
     Indication: DIABETES MELLITUS
     Dosage: 40 MG EVERY DAY PO
     Route: 048
     Dates: start: 19981201, end: 20120907

REACTIONS (3)
  - Angioedema [None]
  - Cough [None]
  - Wheezing [None]
